FAERS Safety Report 6619358-8 (Version None)
Quarter: 2010Q1

REPORT INFORMATION
  Report Type: 
  Country: None (occurrence: None)
  Receive Date: 20100303
  Receipt Date: 20100216
  Transmission Date: 20100710
  Serious: Yes (Other)
  Sender: FDA-Public Use
  Company Number: 2010AL001088

PATIENT
  Age: 74 Year
  Sex: Male

DRUGS (10)
  1. RAMIPRIL [Suspect]
     Dosage: 1.25 MG;QD;PO
     Route: 048
     Dates: start: 20071128, end: 20100203
  2. ARANESP [Concomitant]
  3. ATORVASTATIN CALCIUM [Concomitant]
  4. RANITIDINE [Concomitant]
  5. THALIDOMIDE [Concomitant]
  6. CYCLOPHOSPHAMIDE [Concomitant]
  7. WARFARIN SODIUM [Concomitant]
  8. DEXAMETHASONE [Concomitant]
  9. FLUOROURACIL [Concomitant]
  10. MELPHALAN HYDROCHLORIDE [Concomitant]

REACTIONS (9)
  - BIOPSY BONE MARROW ABNORMAL [None]
  - BLOOD CREATININE INCREASED [None]
  - BLOOD UREA INCREASED [None]
  - ERYTHROPOIESIS ABNORMAL [None]
  - LYMPHOCYTE COUNT INCREASED [None]
  - MEGAKARYOCYTES ABNORMAL [None]
  - MEGAKARYOCYTES INCREASED [None]
  - MONOCYTE COUNT INCREASED [None]
  - PANCYTOPENIA [None]
